FAERS Safety Report 11255369 (Version 1)
Quarter: 2015Q3

REPORT INFORMATION
  Report Type: Report from Study
  Country: JP (occurrence: JP)
  Receive Date: 20150709
  Receipt Date: 20150709
  Transmission Date: 20151125
  Serious: Yes (Death, Other)
  Sender: FDA-Public Use
  Company Number: JP-GLAXOSMITHKLINE-JP2015JPN062000

PATIENT
  Age: 84 Year
  Sex: Female
  Weight: 61 kg

DRUGS (22)
  1. SINGULAIR [Concomitant]
     Active Substance: MONTELUKAST SODIUM
     Dosage: 10 MG, 1D
  2. PREDONINE [Concomitant]
     Active Substance: PREDNISOLONE\PREDNISOLONE ACETATE\PREDNISOLONE SODIUM SUCCINATE
     Indication: IMMUNE THROMBOCYTOPENIC PURPURA
     Dosage: 25 MG, 1D
     Dates: start: 20130425, end: 20130427
  3. HOKUNALIN TAPE [Concomitant]
     Active Substance: TULOBUTEROL
     Dosage: 2 MG, 1D
  4. PARIET [Concomitant]
     Active Substance: RABEPRAZOLE SODIUM
     Dosage: 10 MG, 1D
     Dates: start: 20130413
  5. PREDONINE [Concomitant]
     Active Substance: PREDNISOLONE\PREDNISOLONE ACETATE\PREDNISOLONE SODIUM SUCCINATE
     Dosage: 20 MG, 1D
     Dates: start: 20130428, end: 20130430
  6. ADONA (AC-17) [Concomitant]
     Dosage: 100 MG, 1D
     Dates: start: 20130531, end: 20130531
  7. ELTROMBOPAG [Suspect]
     Active Substance: ELTROMBOPAG
     Dosage: 25 MG, 1D
     Route: 048
     Dates: start: 20130419, end: 20130717
  8. NORVASC [Concomitant]
     Active Substance: AMLODIPINE BESYLATE
     Dosage: 5 MG, 1D
  9. PREDONINE [Concomitant]
     Active Substance: PREDNISOLONE\PREDNISOLONE ACETATE\PREDNISOLONE SODIUM SUCCINATE
     Dosage: 15 MG, 1D
     Dates: start: 20130504, end: 20130506
  10. OMEPRAL [Concomitant]
     Active Substance: OMEPRAZOLE
     Dosage: 20 MG, 1D
     Dates: end: 20130412
  11. ELTROMBOPAG [Suspect]
     Active Substance: ELTROMBOPAG
     Indication: IMMUNE THROMBOCYTOPENIC PURPURA
     Dosage: 12.5 MG, 1D
     Route: 048
     Dates: start: 20130405, end: 20130418
  12. PREDONINE [Concomitant]
     Active Substance: PREDNISOLONE\PREDNISOLONE ACETATE\PREDNISOLONE SODIUM SUCCINATE
     Indication: IMMUNE THROMBOCYTOPENIC PURPURA
     Dosage: 30 MG, 1D
     Dates: end: 20130424
  13. MEROPEN [Concomitant]
     Active Substance: MEROPENEM
     Dosage: 1.5 G, 1D
     Dates: start: 20130405, end: 20130418
  14. GABEXATE MESILATE [Concomitant]
     Active Substance: GABEXATE MESYLATE
     Dosage: 1500 MG, 1D
     Dates: start: 20130407, end: 20130420
  15. CEFTRIAXONE SODIUM HYDRATE [Concomitant]
     Active Substance: CEFTRIAXONE SODIUM
     Dosage: 1 G, 1D
     Dates: start: 20130604, end: 20130605
  16. PREDONINE [Concomitant]
     Active Substance: PREDNISOLONE\PREDNISOLONE ACETATE\PREDNISOLONE SODIUM SUCCINATE
     Dosage: 12.5 MG, 1D
     Dates: start: 20130507, end: 20130509
  17. NU-LOTAN [Concomitant]
     Active Substance: LOSARTAN POTASSIUM
     Dosage: 25 MG, 1D
  18. FUROSEMIDE. [Concomitant]
     Active Substance: FUROSEMIDE
     Dosage: 20 MG, 1D
     Dates: start: 20130405
  19. FLUCONAZOLE. [Concomitant]
     Active Substance: FLUCONAZOLE
     Indication: PROPHYLAXIS
     Dosage: 100 MG, 1D
     Dates: start: 20130411
  20. PREDONINE [Concomitant]
     Active Substance: PREDNISOLONE\PREDNISOLONE ACETATE\PREDNISOLONE SODIUM SUCCINATE
     Dosage: 17.5 MG, 1D
     Dates: start: 20130501, end: 20130503
  21. LIPITOR [Concomitant]
     Active Substance: ATORVASTATIN CALCIUM
     Dosage: 5 MG, 1D
  22. TAKEPRON [Concomitant]
     Active Substance: LANSOPRAZOLE
     Dosage: 30 MG, 1D
     Dates: start: 20130601, end: 20130602

REACTIONS (3)
  - Insomnia [Recovered/Resolved]
  - Liver disorder [Fatal]
  - Peritonitis [Fatal]

NARRATIVE: CASE EVENT DATE: 20130426
